FAERS Safety Report 9196111 (Version 1)
Quarter: 2013Q1

REPORT INFORMATION
  Report Type: Spontaneous
  Country: US (occurrence: None)
  Receive Date: 20120705
  Receipt Date: 20120705
  Transmission Date: 20140127
  Serious: Yes (Hospitalization)
  Sender: FDA-Public Use
  Company Number: US-CYPR-2012-000015

PATIENT
  Age: 53 Year
  Sex: Female
  Weight: 112 kg

DRUGS (13)
  1. CLOPIDOGREL [Suspect]
     Route: 048
     Dates: start: 20101209
  2. ASPIRIN [Suspect]
     Indication: CORONARY ARTERY DISEASE
     Route: 048
     Dates: start: 20091203
  3. METOPROLOL [Concomitant]
  4. SIMVASTATIN [Concomitant]
  5. LOSARTAN [Concomitant]
  6. PRILOSEC [Concomitant]
  7. NORVASC [Concomitant]
  8. AMLODIPINE [Concomitant]
  9. OMEPRAZOLE [Concomitant]
  10. ISOSORBIDE MONONITRATE [Concomitant]
  11. FISH [Concomitant]
  12. FLUTICASONE PROPRIONATE W/ SALMETEROL [Concomitant]
  13. CYPHER STENT [Concomitant]

REACTIONS (1)
  - Non-cardiac chest pain [None]
